FAERS Safety Report 10381126 (Version 2)
Quarter: 2014Q3

REPORT INFORMATION
  Report Type: Spontaneous
  Country: FR (occurrence: FR)
  Receive Date: 20140813
  Receipt Date: 20140814
  Transmission Date: 20150326
  Serious: Yes (Other)
  Sender: FDA-Public Use
  Company Number: FR-PFIZER INC-2014224286

PATIENT
  Age: 82 Year
  Sex: Male

DRUGS (16)
  1. SOLUPRED [Concomitant]
     Active Substance: PREDNISOLONE
     Dosage: 60 MG (3DF), DAILY
     Route: 048
     Dates: start: 20140517
  2. SERTRALINE [Suspect]
     Active Substance: SERTRALINE HYDROCHLORIDE
     Indication: DEPRESSION
     Dosage: 50 MG (1DF), UNK
     Route: 048
     Dates: start: 20140516, end: 20140516
  3. CETIRIZINE [Concomitant]
     Active Substance: CETIRIZINE HYDROCHLORIDE
     Dosage: 10 MG, DAILY
     Route: 048
     Dates: start: 20140516, end: 20140519
  4. NORMACOL [Concomitant]
     Active Substance: KARAYA GUM
     Dosage: 1 DF, UNK
     Route: 054
     Dates: start: 20140519, end: 20140527
  5. NORSET [Suspect]
     Active Substance: MIRTAZAPINE
     Indication: DEPRESSION
     Dosage: 15 MG (1DF), UNK
     Route: 048
     Dates: start: 20140515, end: 20140516
  6. SOLIAN [Suspect]
     Active Substance: AMISULPRIDE
     Indication: DEPRESSION
     Dosage: 50 MG (0.5DF), UNK
     Route: 048
     Dates: start: 20140515, end: 20140516
  7. ATARAX [Concomitant]
     Active Substance: HYDROXYZINE\HYDROXYZINE HYDROCHLORIDE
     Dosage: 50 MG (2DF), DAILY
     Route: 048
     Dates: start: 20140516
  8. LANSOYL [Concomitant]
     Active Substance: MINERAL OIL
     Dosage: 1 DF, DAILY
     Route: 048
  9. TRANSIPEG [Concomitant]
     Active Substance: POLYETHYLENE GLYCOL 3350
     Dosage: 11.8 G, DAILY
     Route: 048
  10. SEROPLEX [Concomitant]
     Active Substance: ESCITALOPRAM OXALATE
     Dosage: 10 MG (1DF), DAILY
     Route: 048
     Dates: start: 20140516
  11. SPAGULAX [Concomitant]
     Active Substance: PLANTAGO OVATA SEED
     Dosage: 3 DF, DAILY
     Route: 048
     Dates: start: 20140519, end: 20140530
  12. LEXOMIL [Concomitant]
     Active Substance: BROMAZEPAM
     Dosage: 1.5 MG (0.25DF), DAILY
     Route: 048
  13. XATRAL [Concomitant]
     Active Substance: ALFUZOSIN
     Dosage: 10 MG (1DF), DAILY
     Route: 048
  14. DAFALGAN [Concomitant]
     Active Substance: ACETAMINOPHEN
     Dosage: 3 G (3DF), DAILY
     Route: 048
  15. ZOLPIDEM TARTRATE. [Suspect]
     Active Substance: ZOLPIDEM TARTRATE
     Indication: DEPRESSION
     Dosage: 10 MG (1 DF), UNK
     Route: 048
     Dates: start: 20140515, end: 20140516
  16. SOLU-MEDROL [Concomitant]
     Active Substance: METHYLPREDNISOLONE SODIUM SUCCINATE
     Dosage: 40MG/2ML, UNK
     Route: 030
     Dates: start: 20140516

REACTIONS (7)
  - Atrioventricular block first degree [Recovered/Resolved]
  - Depressed mood [Recovered/Resolved]
  - Palatal oedema [Recovered/Resolved]
  - Inflammation [Recovered/Resolved]
  - Dyspnoea [Recovered/Resolved]
  - Tonsillar disorder [Recovered/Resolved]
  - Bradycardia [Recovered/Resolved]

NARRATIVE: CASE EVENT DATE: 20140516
